FAERS Safety Report 9797305 (Version 1)
Quarter: 2014Q1

REPORT INFORMATION
  Report Type: Spontaneous
  Country: US (occurrence: US)
  Receive Date: 20140106
  Receipt Date: 20140106
  Transmission Date: 20141002
  Serious: Yes (Hospitalization)
  Sender: FDA-Public Use
  Company Number: US-BIOGENIDEC-2013BI124302

PATIENT
  Age: 28 Year
  Sex: Female

DRUGS (4)
  1. TYSABRI [Suspect]
     Indication: MULTIPLE SCLEROSIS
     Route: 042
     Dates: start: 20080806, end: 20130531
  2. TRAMADOL [Concomitant]
  3. ACETAMINOPHEN [Concomitant]
  4. AMANTADINE [Concomitant]

REACTIONS (3)
  - Multiple sclerosis [Unknown]
  - Migraine [Unknown]
  - Depression [Unknown]
